FAERS Safety Report 6621729-0 (Version None)
Quarter: 2010Q1

REPORT INFORMATION
  Report Type: 
  Country: None (occurrence: None)
  Receive Date: 20100309
  Receipt Date: 20100224
  Transmission Date: 20100710
  Serious: Yes (Death, Hospitalization)
  Sender: FDA-Public Use
  Company Number: JP-AMGEN-US381957

PATIENT
  Sex: Female
  Weight: 42 kg

DRUGS (10)
  1. ENBREL [Suspect]
     Indication: RHEUMATOID ARTHRITIS
     Route: 058
     Dates: start: 20080818, end: 20081208
  2. ENBREL [Suspect]
     Dosage: 50 MG WEEKLY OF LYOPHILIZED DOSE FORM
     Route: 058
     Dates: start: 20050926, end: 20080814
  3. ENBREL [Suspect]
     Route: 058
     Dates: start: 20081209, end: 20090629
  4. RHEUMATREX [Suspect]
     Indication: RHEUMATOID ARTHRITIS
     Dosage: 2 MG, FREQUENCY UNKNOWN
     Route: 048
     Dates: end: 20090801
  5. RHEUMATREX [Suspect]
     Dosage: 2 MG, FREQUENCY UNKNOWN
     Route: 048
     Dates: start: 20090915, end: 20091027
  6. PREDNISOLONE [Concomitant]
     Indication: RHEUMATOID ARTHRITIS
     Route: 048
     Dates: start: 20090915, end: 20091205
  7. MUCOSTA [Concomitant]
     Indication: PROPHYLAXIS AGAINST GASTROINTESTINAL ULCER
     Route: 048
     Dates: start: 20090724, end: 20090804
  8. ACTONEL [Concomitant]
  9. PRAVASTATIN [Concomitant]
     Indication: HYPERLIPIDAEMIA
     Route: 048
     Dates: start: 20080324, end: 20090803
  10. FOLIAMIN [Concomitant]
     Indication: PROPHYLAXIS
     Route: 048

REACTIONS (3)
  - GASTRIC CANCER STAGE IV [None]
  - SEPSIS [None]
  - URINARY TRACT INFECTION [None]
